FAERS Safety Report 6373417-6 (Version None)
Quarter: 2009Q3

REPORT INFORMATION
  Report Type: 
  Country: None (occurrence: None)
  Receive Date: 20090924
  Receipt Date: 20090316
  Transmission Date: 20100115
  Serious: No
  Sender: FDA-Public Use
  Company Number: US-ASTRAZENECA-2009UW06838

PATIENT
  Age: 508 Month
  Sex: Male
  Weight: 112.5 kg

DRUGS (10)
  1. SEROQUEL [Suspect]
     Indication: BIPOLAR DISORDER
     Route: 048
  2. SEROQUEL [Suspect]
     Route: 048
  3. SEROQUEL [Suspect]
     Route: 048
  4. SEROQUEL [Suspect]
     Route: 048
     Dates: start: 20090220
  5. LISINOPRIL [Concomitant]
  6. DEPLIN [Concomitant]
  7. PROVIGIL [Concomitant]
  8. LITHOBID [Concomitant]
  9. NORTRIPTYLINE HCL [Concomitant]
  10. LORAZEPAM [Concomitant]

REACTIONS (8)
  - DECREASED APPETITE [None]
  - FATIGUE [None]
  - MUSCLE STRAIN [None]
  - MUSCULAR WEAKNESS [None]
  - SEDATION [None]
  - SENSORY LOSS [None]
  - SOMNOLENCE [None]
  - WEIGHT DECREASED [None]
